FAERS Safety Report 4434221-9 (Version None)
Quarter: 2004Q3

REPORT INFORMATION
  Report Type: 
  Country: None (occurrence: None)
  Receive Date: 20040726
  Receipt Date: 20040511
  Transmission Date: 20050211
  Serious: No
  Sender: FDA-Public Use
  Company Number: USA040157262

PATIENT
  Age: 94 Year
  Sex: Female

DRUGS (10)
  1. FORTEO [Suspect]
     Indication: OSTEOPOROSIS
     Dates: start: 20030427
  2. ASPIRIN [Concomitant]
  3. ACCUPRIL [Concomitant]
  4. VITAMIN E [Concomitant]
  5. COD-LIVER OIL [Concomitant]
  6. MULTI-VITAMIN [Concomitant]
  7. CALTRATE (CALCIUM CARBONATE) [Concomitant]
  8. HYDROCODONE [Concomitant]
  9. DITROPAN [Concomitant]
  10. OSTEO BI-FLEX [Concomitant]

REACTIONS (1)
  - HYPOACUSIS [None]
